FAERS Safety Report 9067586 (Version 2)
Quarter: 2013Q1

REPORT INFORMATION
  Report Type: Spontaneous
  Country: BR (occurrence: BR)
  Receive Date: 20130129
  Receipt Date: 20130226
  Transmission Date: 20140127
  Serious: Yes (Other)
  Sender: FDA-Public Use
  Company Number: PHHY2013BR006935

PATIENT
  Age: 0 None
  Sex: Female
  Weight: 2 kg

DRUGS (5)
  1. ZOMETA [Suspect]
     Indication: FOETAL EXPOSURE DURING PREGNANCY
     Dosage: 4 MG / 5 ML, CYCLE OF 21 DAYS
     Route: 064
     Dates: start: 200908
  2. PARACETAMOL [Concomitant]
     Indication: FOETAL EXPOSURE DURING PREGNANCY
     Dosage: 3 DF, DAILY
     Route: 048
     Dates: end: 20121106
  3. NORIPURUM [Concomitant]
     Indication: FOETAL EXPOSURE DURING PREGNANCY
     Dosage: 1 DF, DAILY
     Route: 048
     Dates: end: 20121106
  4. INHIBIN                            /00508201/ [Concomitant]
     Indication: FOETAL EXPOSURE DURING PREGNANCY
  5. CORTICOSTEROIDS [Concomitant]
     Indication: FOETAL EXPOSURE DURING PREGNANCY
     Dosage: 5 DF, UNK
     Dates: end: 20121106

REACTIONS (2)
  - Premature baby [Unknown]
  - Foetal exposure during pregnancy [Unknown]
